FAERS Safety Report 4355399-1 (Version None)
Quarter: 2004Q2

REPORT INFORMATION
  Report Type: 
  Country: None (occurrence: None)
  Receive Date: 20040504
  Receipt Date: 20030731
  Transmission Date: 20050107
  Serious: No
  Sender: FDA-Public Use
  Company Number: 200303111

PATIENT
  Age: 21 Year
  Sex: Female

DRUGS (7)
  1. TYLENOL [Suspect]
     Indication: SUICIDE ATTEMPT
     Dosage: PO
     Route: 048
  2. KETOPROFEN [Suspect]
     Indication: SUICIDE ATTEMPT
     Dosage: PO
     Route: 048
  3. NAPHAZOLINE HCL [Suspect]
     Indication: SUICIDE ATTEMPT
     Dosage: PO
     Route: 048
  4. DIPYRONE TAB [Suspect]
     Indication: SUICIDE ATTEMPT
     Dosage: PO
     Route: 048
  5. ROFECOXIB [Suspect]
     Indication: SUICIDE ATTEMPT
     Dosage: PO
     Route: 048
  6. CEFADROXILA [Suspect]
     Indication: SUICIDE ATTEMPT
  7. METAMIZOLE/ORPHENADRINE/CAFFEINE [Suspect]
     Indication: SUICIDE ATTEMPT
     Dosage: PO
     Route: 048

REACTIONS (4)
  - DIZZINESS [None]
  - INTENTIONAL MISUSE [None]
  - SUICIDE ATTEMPT [None]
  - VOMITING [None]
